FAERS Safety Report 9448095 (Version 3)
Quarter: 2013Q3

REPORT INFORMATION
  Report Type: Report from Study
  Country: AR (occurrence: AR)
  Receive Date: 20130808
  Receipt Date: 20130918
  Transmission Date: 20140515
  Serious: No
  Sender: FDA-Public Use
  Company Number: AR-ROCHE-1254209

PATIENT
  Age: 48 Year
  Sex: Female
  Weight: 54.6 kg

DRUGS (4)
  1. TRASTUZUMAB EMTANSINE [Suspect]
     Indication: BREAST CANCER
     Dosage: DATE OF LAST DOSE ORIOR TO SAE:05/JUL/2013. TEMPORARILY INTERRUPTED ON 25/JUL/2013
     Route: 042
     Dates: start: 20130705, end: 20130816
  2. ESOMEPRAZOLE [Concomitant]
     Indication: GASTRITIS
     Route: 065
     Dates: start: 2011
  3. CLONAZEPAM [Concomitant]
     Indication: ANXIETY
     Route: 065
     Dates: start: 2012
  4. TRIMEBUTINE [Concomitant]
     Indication: IRRITABLE BOWEL SYNDROME
     Route: 065
     Dates: start: 2011

REACTIONS (1)
  - Cholestasis [Not Recovered/Not Resolved]
